FAERS Safety Report 22147052 (Version 3)
Quarter: 2023Q2

REPORT INFORMATION
  Report Type: Report from Study
  Country: PL (occurrence: PL)
  Receive Date: 20230328
  Receipt Date: 20230406
  Transmission Date: 20230721
  Serious: Yes (Hospitalization)
  Sender: FDA-Public Use
  Company Number: PL-002147023-NVSC2022PL275537

PATIENT
  Age: 34 Year
  Sex: Female
  Weight: 45.8 kg

DRUGS (4)
  1. OFATUMUMAB [Suspect]
     Active Substance: OFATUMUMAB
     Indication: Relapsing multiple sclerosis
     Dosage: 1 MG, QMO
     Route: 058
     Dates: start: 20220215
  2. BISOPROLOL [Concomitant]
     Active Substance: BISOPROLOL
     Indication: Tachycardia
     Dosage: UNK
     Route: 065
     Dates: start: 2011
  3. VITAMIN D3 [Concomitant]
     Active Substance: CHOLECALCIFEROL
     Indication: Vitamin supplementation
     Dosage: UNK
     Route: 065
     Dates: start: 2017
  4. IBUPROFEN [Concomitant]
     Active Substance: IBUPROFEN
     Indication: Back pain
     Dosage: UNK
     Route: 065
     Dates: start: 2015

REACTIONS (3)
  - Uterine leiomyoma [Recovered/Resolved]
  - Uterine leiomyoma [Recovered/Resolved]
  - Endometrial hyperplasia [Recovering/Resolving]

NARRATIVE: CASE EVENT DATE: 20221006
